FAERS Safety Report 5033075-X (Version None)
Quarter: 2006Q2

REPORT INFORMATION
  Report Type: 
  Country: None (occurrence: None)
  Receive Date: 20060620
  Receipt Date: 20060601
  Transmission Date: 20061013
  Serious: No
  Sender: FDA-Public Use
  Company Number: US200606001462

PATIENT

DRUGS (1)
  1. CYMBALTA [Suspect]
     Dosage: 60 MG,
     Dates: start: 20060401, end: 20060601

REACTIONS (1)
  - LIVER FUNCTION TEST ABNORMAL [None]
